FAERS Safety Report 9707106 (Version 1)
Quarter: 2013Q4

REPORT INFORMATION
  Report Type: Spontaneous
  Country: US (occurrence: US)
  Receive Date: 20131125
  Receipt Date: 20131125
  Transmission Date: 20140711
  Serious: No
  Sender: FDA-Public Use
  Company Number: US-PFIZER INC-2013336165

PATIENT
  Sex: Female

DRUGS (2)
  1. EFFEXOR XR [Suspect]
     Indication: HOT FLUSH
     Dosage: UNK
  2. EFFEXOR XR [Suspect]
     Indication: MENOPAUSAL SYMPTOMS

REACTIONS (4)
  - Headache [Unknown]
  - Neck pain [Unknown]
  - Ear pain [Unknown]
  - Off label use [Unknown]
